FAERS Safety Report 7671133-1 (Version None)
Quarter: 2011Q3

REPORT INFORMATION
  Report Type: 
  Country: None (occurrence: None)
  Receive Date: 20110808
  Receipt Date: 20110808
  Transmission Date: 20111222
  Serious: Yes (Other)
  Sender: FDA-Public Use
  Company Number: None

PATIENT
  Age: 62 Year
  Sex: Female

DRUGS (1)
  1. EXJADE [Suspect]
     Dosage: 1,000MG DAILY PO
     Route: 048
     Dates: start: 20110607, end: 20110607

REACTIONS (1)
  - DRUG HYPERSENSITIVITY [None]
